FAERS Safety Report 9376003 (Version 2)
Quarter: 2013Q4

REPORT INFORMATION
  Report Type: Spontaneous
  Country: JP (occurrence: JP)
  Receive Date: 20130629
  Receipt Date: 20131202
  Transmission Date: 20140711
  Serious: Yes (Life-Threatening)
  Sender: FDA-Public Use
  Company Number: JP-ROCHE-1242202

PATIENT
  Age: 61 Year
  Sex: Male
  Weight: 57 kg

DRUGS (9)
  1. AVASTIN [Suspect]
     Indication: NON-SMALL CELL LUNG CANCER RECURRENT
     Route: 041
     Dates: start: 20130117, end: 20130301
  2. AVASTIN [Suspect]
     Indication: NON-SMALL CELL LUNG CANCER RECURRENT
     Dosage: DOSAGE IS UNCERTAIN.
     Route: 041
     Dates: start: 20130419
  3. ALIMTA [Suspect]
     Indication: NON-SMALL CELL LUNG CANCER RECURRENT
     Route: 041
     Dates: start: 20130117, end: 20130301
  4. ALEVIATIN [Concomitant]
     Indication: PROPHYLAXIS
     Route: 048
     Dates: start: 20120815, end: 201303
  5. URSO [Concomitant]
     Indication: HEPATIC FUNCTION ABNORMAL
     Route: 048
     Dates: start: 20120906, end: 20130212
  6. ZYPREXA [Concomitant]
     Indication: INSOMNIA
     Route: 048
     Dates: start: 20120911, end: 20130125
  7. PANVITAN [Concomitant]
     Indication: PROPHYLAXIS
     Route: 048
     Dates: start: 20130110, end: 20130314
  8. DEXART [Concomitant]
     Indication: PREMEDICATION
     Route: 041
     Dates: start: 20130117, end: 20130214
  9. NEUTROGIN [Concomitant]
     Indication: PROPHYLAXIS
     Route: 058
     Dates: start: 20130126, end: 20130223

REACTIONS (1)
  - Interstitial lung disease [Recovering/Resolving]
